FAERS Safety Report 13946719 (Version 2)
Quarter: 2018Q1

REPORT INFORMATION
  Report Type: Report from Study
  Country: US (occurrence: US)
  Receive Date: 20170907
  Receipt Date: 20180105
  Transmission Date: 20180508
  Serious: Yes (Death)
  Sender: FDA-Public Use
  Company Number: US-ROCHE-1990433

PATIENT
  Sex: Male

DRUGS (1)
  1. CELLCEPT [Suspect]
     Active Substance: MYCOPHENOLATE MOFETIL\MYCOPHENOLATE MOFETIL HYDROCHLORIDE
     Indication: MYASTHENIA GRAVIS
     Dosage: 2 TABS BID
     Route: 048

REACTIONS (3)
  - Intentional product use issue [Fatal]
  - Death [Fatal]
  - Off label use [Fatal]
